FAERS Safety Report 8308482-X (Version None)
Quarter: 2012Q2

REPORT INFORMATION
  Report Type: 
  Country: None (occurrence: None)
  Receive Date: 20120419
  Receipt Date: 20120405
  Transmission Date: 20120825
  Serious: Yes (Hospitalization)
  Sender: FDA-Public Use
  Company Number: VAL_00743_2012

PATIENT
  Sex: Female

DRUGS (8)
  1. IRBESARTAN [Suspect]
     Indication: HYPOCALCAEMIA
     Dosage: (1 DF QD ORAL)
     Route: 048
     Dates: start: 20120203, end: 20120203
  2. IRBESARTAN [Suspect]
     Indication: HYPERTENSION
     Dosage: (1 DF QD ORAL)
     Route: 048
     Dates: start: 20120203, end: 20120203
  3. OMEPRAZOLE [Concomitant]
  4. LASIX [Concomitant]
  5. ARANESP [Concomitant]
  6. NORVASC [Concomitant]
  7. TICLID [Concomitant]
  8. ROCALTROL [Suspect]
     Indication: HYPOCALCAEMIA
     Dosage: (1 DF QD ORAL)
     Route: 048
     Dates: start: 20120203, end: 20120203

REACTIONS (2)
  - HYPERCALCAEMIA [None]
  - RENAL FAILURE [None]
